FAERS Safety Report 4831669-5 (Version None)
Quarter: 2005Q4

REPORT INFORMATION
  Report Type: 
  Country: None (occurrence: None)
  Receive Date: 20051116
  Receipt Date: 20051109
  Transmission Date: 20060501
  Serious: Yes (Hospitalization)
  Sender: FDA-Public Use
  Company Number: 200513809GDS

PATIENT
  Age: 71 Year
  Sex: Female

DRUGS (1)
  1. PHENYLEPHRINE [Suspect]
     Indication: HYPERTENSION
     Dosage: INTRAVENOUS
     Route: 042

REACTIONS (1)
  - ELECTROCARDIOGRAM U-WAVE ABNORMALITY [None]
